FAERS Safety Report 14333551 (Version 2)
Quarter: 2018Q1

REPORT INFORMATION
  Report Type: Report from Study
  Country: DK (occurrence: DK)
  Receive Date: 20171228
  Receipt Date: 20180306
  Transmission Date: 20180509
  Serious: Yes (Death, Life-Threatening, Hospitalization)
  Sender: FDA-Public Use
  Company Number: DK-BAYER-2015-093773

PATIENT
  Age: 70 Year
  Sex: Female
  Weight: 69 kg

DRUGS (12)
  1. METRONIDAZOL [Concomitant]
     Active Substance: METRONIDAZOLE
     Dosage: UNK
     Route: 042
     Dates: start: 20150329
  2. FLUCONAZOL [Concomitant]
     Active Substance: FLUCONAZOLE
     Dosage: 400MG DAILY
     Dates: start: 20150331
  3. AMLODIPINE MESILATE [Concomitant]
     Active Substance: AMLODIPINE MESYLATE
     Dosage: 400 MG DAILY
     Dates: start: 20150331
  4. PIPERACILLIN [Concomitant]
     Active Substance: PIPERACILLIN
     Dosage: UNK
  5. STIVARGA [Suspect]
     Active Substance: REGORAFENIB
     Indication: COLORECTAL CANCER METASTATIC
     Dosage: DAILY DOSE 160 MG
     Route: 048
     Dates: start: 20150312
  6. FRAGMIN [Concomitant]
     Active Substance: DALTEPARIN SODIUM
     Dosage: UNK
     Dates: start: 20150329
  7. OXYCODON [Concomitant]
     Active Substance: OXYCODONE
     Dosage: 5 MG, PRN
     Route: 042
     Dates: start: 20150331
  8. OXYCODON [Concomitant]
     Active Substance: OXYCODONE
     Dosage: 3000 MG DAILY
     Dates: start: 20150331
  9. PARACETAMOL [Concomitant]
     Active Substance: ACETAMINOPHEN
     Dosage: 3000 MG DAILY
     Dates: start: 20150331
  10. TAZOCIN [Concomitant]
     Active Substance: PIPERACILLIN SODIUM\TAZOBACTAM SODIUM
     Dosage: UNK
     Dates: start: 20150329
  11. METRONIDAZOL [Concomitant]
     Active Substance: METRONIDAZOLE
     Dosage: 5 MG, PRN
     Route: 042
     Dates: start: 20150331
  12. TAZOBACTAM [Concomitant]
     Active Substance: TAZOBACTAM
     Dosage: UNK

REACTIONS (6)
  - Colorectal cancer metastatic [Recovered/Resolved]
  - Large intestine perforation [Recovered/Resolved]
  - Vomiting [Recovered/Resolved]
  - Colorectal cancer metastatic [Fatal]
  - Abdominal pain upper [Recovered/Resolved]
  - Diarrhoea [Recovered/Resolved]

NARRATIVE: CASE EVENT DATE: 20150329
